FAERS Safety Report 7927199-4 (Version None)
Quarter: 2011Q4

REPORT INFORMATION
  Report Type: 
  Country: None (occurrence: None)
  Receive Date: 20111118
  Receipt Date: 20111110
  Transmission Date: 20120403
  Serious: Yes (Hospitalization, Other)
  Sender: FDA-Public Use
  Company Number: BR-BAYER-200916655LA

PATIENT
  Age: 19 Year
  Sex: Female

DRUGS (30)
  1. MOTILIUM [Concomitant]
     Indication: GASTROOESOPHAGEAL REFLUX DISEASE
  2. SYMPATHOMIMETICS [Concomitant]
     Indication: RHINITIS
     Route: 045
     Dates: start: 20060101
  3. VITAMIN D [Concomitant]
     Indication: MULTIPLE SCLEROSIS
     Dosage: 1 DF, QD
     Route: 048
     Dates: start: 20110101
  4. UNKNOWN MEDICATION [Concomitant]
     Indication: PROPHYLAXIS URINARY TRACT INFECTION
     Dosage: 1 DF, QD
     Route: 048
     Dates: start: 20110101
  5. BETASERON [Suspect]
     Indication: RELAPSING-REMITTING MULTIPLE SCLEROSIS
     Dosage: 8 MIU, QOD
     Route: 058
     Dates: start: 20081101
  6. DORFLEX [Concomitant]
     Indication: HEADACHE
     Dosage: UNK, QD
     Route: 048
     Dates: start: 20081101
  7. MOTILIUM [Concomitant]
     Indication: GASTRITIS
  8. BETASERON [Suspect]
     Dosage: 1 ML, QOD
     Route: 058
  9. OMEPRAZOLE [Concomitant]
     Indication: GASTROOESOPHAGEAL REFLUX DISEASE
  10. VITAMIN D [Concomitant]
     Indication: NEUROLOGICAL SYMPTOM
     Dosage: UNK
     Route: 048
     Dates: start: 20101001
  11. TIMOLOL MALEATE [Concomitant]
     Indication: PROPHYLAXIS
     Dosage: 2 GTT, BID
     Route: 047
     Dates: start: 20100901
  12. PANTOPRAZOLE [Concomitant]
     Indication: GASTROOESOPHAGEAL REFLUX PROPHYLAXIS
  13. OMEPRAZOLE [Concomitant]
     Indication: PROPHYLAXIS
     Route: 048
     Dates: start: 20100701
  14. UNKNOWN DRUG [Concomitant]
     Indication: RHINITIS
     Dosage: 1 DF, PRN
     Route: 045
     Dates: start: 20100101
  15. BETASERON [Suspect]
     Dosage: 8 MIU, QOD
     Route: 058
     Dates: end: 20100615
  16. BETASERON [Suspect]
     Dosage: 8 MIU, QOD
     Route: 058
     Dates: start: 20100101
  17. HERBALIFE PRODUCTS [Concomitant]
     Indication: INSOMNIA
     Route: 048
  18. OMEPRAZOLE [Concomitant]
     Indication: GASTRITIS
  19. DORFLEX [Concomitant]
     Indication: MALAISE
     Route: 048
     Dates: start: 20090601, end: 20100727
  20. DORFLEX [Concomitant]
     Indication: PROPHYLAXIS
     Dosage: 1 DF, PRN
     Route: 048
     Dates: start: 20100506
  21. NALIDIXIC ACID [Concomitant]
     Dosage: 1 DF, QD
     Route: 048
     Dates: start: 20110101
  22. GLAUQUIMOL [Concomitant]
     Indication: ABNORMAL SENSATION IN EYE
     Dosage: UNK UNK, BID
     Dates: start: 20090101
  23. DORFLEX [Concomitant]
  24. CICLESONIDE [Concomitant]
     Indication: RHINITIS
     Dosage: UNK
     Route: 045
  25. URO-VAXOM [ESCHERICHIA COLI] [Concomitant]
     Indication: IMMUNISATION
     Dosage: 1 DF, HS
     Route: 048
     Dates: start: 20110216
  26. TIMOPTIC [Concomitant]
     Indication: INTRAOCULAR PRESSURE INCREASED
  27. PANTOPRAZOLE [Concomitant]
     Indication: GASTROOESOPHAGEAL REFLUX DISEASE
     Route: 048
     Dates: end: 20100115
  28. MOTILIUM [Concomitant]
     Indication: GASTROOESOPHAGEAL REFLUX PROPHYLAXIS
     Route: 048
     Dates: end: 20100115
  29. NALIDIXIC ACID [Concomitant]
     Indication: INFECTION PROPHYLAXIS
     Dosage: 1 DF, QD
     Route: 048
     Dates: start: 20100301
  30. HYDROXYETHYLCELLULOSE [Concomitant]
     Indication: DRY EYE
     Dosage: 1 DF, PRN
     Route: 047

REACTIONS (53)
  - HEAD DISCOMFORT [None]
  - MALAISE [None]
  - BONE PAIN [None]
  - TREMOR [None]
  - JOINT CREPITATION [None]
  - INJECTION SITE HAEMORRHAGE [None]
  - FEELING COLD [None]
  - ERUCTATION [None]
  - GASTROOESOPHAGEAL REFLUX DISEASE [None]
  - LEARNING DISORDER [None]
  - BALANCE DISORDER [None]
  - EMOTIONAL DISORDER [None]
  - COORDINATION ABNORMAL [None]
  - MUSCULAR WEAKNESS [None]
  - PARAESTHESIA [None]
  - INSOMNIA [None]
  - DYSPEPSIA [None]
  - INJECTION SITE DISCOMFORT [None]
  - FATIGUE [None]
  - OPTIC NERVE CUPPING [None]
  - THERMOHYPERAESTHESIA [None]
  - WEIGHT DECREASED [None]
  - WEIGHT INCREASED [None]
  - INJECTION SITE HAEMATOMA [None]
  - INJECTION SITE DISCOLOURATION [None]
  - ASTHENIA [None]
  - URINARY TRACT INFECTION [None]
  - URINARY INCONTINENCE [None]
  - INJECTION SITE PRURITUS [None]
  - MUSCULOSKELETAL DISCOMFORT [None]
  - INJECTION SITE ERYTHEMA [None]
  - ABDOMINAL DISCOMFORT [None]
  - SCAR [None]
  - SENSATION OF HEAVINESS [None]
  - CHILLS [None]
  - LISTLESS [None]
  - CLAVICLE FRACTURE [None]
  - NERVOUSNESS [None]
  - PAIN [None]
  - DYSPNOEA [None]
  - PAIN IN EXTREMITY [None]
  - ERYTHEMA [None]
  - INJECTION SITE PAIN [None]
  - HEADACHE [None]
  - MULTIPLE SCLEROSIS [None]
  - TENSION [None]
  - CRYING [None]
  - INJECTION SITE RASH [None]
  - BURSITIS [None]
  - REFLUX GASTRITIS [None]
  - DRY EYE [None]
  - FALL [None]
  - POLLAKIURIA [None]
